FAERS Safety Report 10028867 (Version 3)
Quarter: 2014Q2

REPORT INFORMATION
  Report Type: Report from Study
  Country: DE (occurrence: DE)
  Receive Date: 20140321
  Receipt Date: 20140410
  Transmission Date: 20141212
  Serious: Yes (Death, Hospitalization)
  Sender: FDA-Public Use
  Company Number: DE-BRISTOL-MYERS SQUIBB COMPANY-18771535

PATIENT
  Age: 53 Year
  Sex: Male
  Weight: 71 kg

DRUGS (8)
  1. ERBITUX SOLN FOR INF [Suspect]
     Indication: SQUAMOUS CELL CARCINOMA OF THE HYPOPHARYNX
     Dosage: LAST DOSE 465MG ADMINISTERED ON 26MAR2013 (08:30AM-1PM).;250 MG/M2 1 IN 1 WEEK;LAST:02APR2013
     Route: 042
     Dates: start: 20130204, end: 20130402
  2. 5-FLUOROURACIL [Concomitant]
     Indication: SQUAMOUS CELL CARCINOMA OF HEAD AND NECK
     Dosage: 1000 MG/M2 1 IN 3 WK
     Route: 042
     Dates: start: 20130204, end: 20130402
  3. CARBOPLATIN [Concomitant]
     Indication: SQUAMOUS CELL CARCINOMA OF HEAD AND NECK
     Dosage: 1 DF=560 AUC ; RECENT:02APR2013;
     Route: 042
     Dates: start: 20130204, end: 20130402
  4. ANTIHISTAMINE DRUGS [Concomitant]
     Dates: start: 20130204, end: 20130211
  5. CORTICOSTEROID [Concomitant]
     Route: 042
     Dates: start: 20130204, end: 20130211
  6. RANITIDINE [Concomitant]
     Indication: PREMEDICATION
     Dates: start: 20130204, end: 20130211
  7. FUROSEMIDE [Concomitant]
     Indication: PREMEDICATION
     Dates: start: 20130204, end: 20130211
  8. ONDANSETRON [Concomitant]
     Indication: PREMEDICATION
     Dates: start: 20130204, end: 20130211

REACTIONS (3)
  - Venous thrombosis limb [Fatal]
  - Sepsis [Fatal]
  - Hypoxia [Fatal]
